FAERS Safety Report 8814768 (Version 2)
Quarter: 2012Q4

REPORT INFORMATION
  Report Type: 
  Country: JP (occurrence: JP)
  Receive Date: 20120928
  Receipt Date: 20121018
  Transmission Date: 20130627
  Serious: Yes (Hospitalization)
  Sender: FDA-Public Use
  Company Number: JP-BAYER-2012-101266

PATIENT
  Age: 63 Year
  Sex: Male

DRUGS (1)
  1. BAYASPIRIN [Suspect]
     Route: 048

REACTIONS (3)
  - Oesophageal haemorrhage [None]
  - Oesophageal carcinoma [None]
  - Shock [None]
